FAERS Safety Report 24334642 (Version 1)
Quarter: 2024Q3

REPORT INFORMATION
  Report Type: Spontaneous
  Country: US (occurrence: US)
  Receive Date: 20240918
  Receipt Date: 20240918
  Transmission Date: 20241016
  Serious: No
  Sender: SANOFI AVENTIS
  Company Number: US-SA-2024SA267137

PATIENT
  Age: 49 Year
  Sex: Male
  Weight: 93.18 kg

DRUGS (1)
  1. DUPIXENT [Suspect]
     Active Substance: DUPILUMAB
     Indication: Product used for unknown indication
     Dosage: 300 MG, QW
     Route: 058
     Dates: start: 20240825

REACTIONS (3)
  - Dizziness [Unknown]
  - Fall [Unknown]
  - Visual impairment [Unknown]

NARRATIVE: CASE EVENT DATE: 20240825
